FAERS Safety Report 8621664-2 (Version None)
Quarter: 2012Q3

REPORT INFORMATION
  Report Type: 
  Country: None (occurrence: None)
  Receive Date: 20120821
  Receipt Date: 20120821
  Transmission Date: 20120928
  Serious: Yes (Other)
  Sender: FDA-Public Use
  Company Number: None

PATIENT
  Age: 35 Year
  Sex: Female
  Weight: 54.4316 kg

DRUGS (1)
  1. DEXILANT [Suspect]
     Indication: REFLUX LARYNGITIS
     Dosage: 1 CAPSULE -60MG-	1 TIME PER DAY PO
     Route: 048
     Dates: start: 20120512, end: 20120816

REACTIONS (1)
  - ALOPECIA [None]
